FAERS Safety Report 4370915-1 (Version None)
Quarter: 2004Q2

REPORT INFORMATION
  Report Type: 
  Country: None (occurrence: None)
  Receive Date: 20040601
  Receipt Date: 20040517
  Transmission Date: 20050107
  Serious: Yes (Hospitalization, Other)
  Sender: FDA-Public Use
  Company Number: DE-JNJFOC-20040501520

PATIENT
  Age: 11 Year
  Sex: Male
  Weight: 46.7 kg

DRUGS (2)
  1. CONCERTA [Suspect]
     Indication: ATTENTION DEFICIT/HYPERACTIVITY DISORDER
     Dosage: 36 MG, 1 IN1 DAY, ORAL
     Route: 048
     Dates: start: 20040305, end: 20040503
  2. DIPIPERON (UNSPECIFIED) PIPAMPERONE [Concomitant]

REACTIONS (4)
  - HALLUCINATION, AUDITORY [None]
  - HALLUCINATION, VISUAL [None]
  - PARANOIA [None]
  - THINKING ABNORMAL [None]
